FAERS Safety Report 7022852-1 (Version None)
Quarter: 2010Q3

REPORT INFORMATION
  Report Type: 
  Country: None (occurrence: None)
  Receive Date: 20100930
  Receipt Date: 20100927
  Transmission Date: 20110219
  Serious: Yes (Hospitalization)
  Sender: FDA-Public Use
  Company Number: D0068964A

PATIENT
  Age: 84 Year
  Sex: Male
  Weight: 84 kg

DRUGS (5)
  1. ROPINIROLE [Suspect]
     Indication: PARKINSON'S DISEASE
     Dosage: .5MG TWICE PER DAY
     Route: 048
     Dates: start: 20100102
  2. TERAZOSIN HCL [Suspect]
     Dosage: 2.5MG TWICE PER DAY
     Route: 048
     Dates: start: 20091101
  3. CARMEN [Suspect]
     Dosage: 20MG PER DAY
     Route: 048
     Dates: start: 20091101
  4. DIGITOXIN [Concomitant]
     Indication: ATRIAL FIBRILLATION
     Dosage: .07MG PER DAY
     Route: 048
     Dates: start: 20061101
  5. ACETYLSALICYLIC ACID SRT [Concomitant]
     Dosage: 100MG PER DAY
     Route: 048
     Dates: start: 20091101

REACTIONS (7)
  - COLD SWEAT [None]
  - DIZZINESS [None]
  - DRUG INTERACTION [None]
  - HEADACHE [None]
  - LOSS OF CONSCIOUSNESS [None]
  - PHOTOSENSITIVITY REACTION [None]
  - SYNCOPE [None]
